FAERS Safety Report 5729330-8 (Version None)
Quarter: 2008Q2

REPORT INFORMATION
  Report Type: 
  Country: None (occurrence: None)
  Receive Date: 20080506
  Receipt Date: 20080429
  Transmission Date: 20081010
  Serious: No
  Sender: FDA-Public Use
  Company Number: US-BAXTER-2008BH004501

PATIENT
  Age: 52 Year
  Sex: Female

DRUGS (1)
  1. HEPARIN SODIUM [Suspect]
     Indication: DRUG USE FOR UNKNOWN INDICATION
     Dosage: DOSE UNIT:UNKNOWN
     Route: 065

REACTIONS (11)
  - ABDOMINAL PAIN UPPER [None]
  - BURNING SENSATION [None]
  - DYSPNOEA [None]
  - FLUSHING [None]
  - HEADACHE [None]
  - HEART RATE INCREASED [None]
  - LACRIMATION INCREASED [None]
  - PALLOR [None]
  - PARAESTHESIA [None]
  - THIRST [None]
  - URINARY TRACT INFECTION [None]
